FAERS Safety Report 8882205 (Version 5)
Quarter: 2012Q4

REPORT INFORMATION
  Report Type: 
  Country: JP (occurrence: JP)
  Receive Date: 20121102
  Receipt Date: 20121130
  Transmission Date: 20130627
  Serious: Yes (Death, Other)
  Sender: FDA-Public Use
  Company Number: JP-PFIZER INC-2012264643

PATIENT
  Age: 40 Year
  Sex: Male

DRUGS (13)
  1. LYRICA [Suspect]
     Indication: LOW BACK PAIN
     Dosage: 25 mg, 2x/day
     Route: 048
     Dates: start: 20120207, end: 20120213
  2. LYRICA [Suspect]
     Indication: PAIN IN FOOT
     Dosage: 75 mg, 2x/day
     Route: 048
     Dates: start: 20120214, end: 20120319
  3. LYRICA [Suspect]
     Dosage: 150 mg, 2x/day
     Route: 048
     Dates: start: 20120320, end: 20121008
  4. LYRICA [Suspect]
     Dosage: 300 mg, 2x/day
     Route: 048
     Dates: start: 20121009
  5. CHAMPIX [Suspect]
     Indication: SMOKING CESSATION THERAPY
     Dosage: 0.5 mg, 1x/day
     Route: 048
     Dates: start: 20120724, end: 20120726
  6. CHAMPIX [Suspect]
     Indication: NICOTINE DEPENDENCE
     Dosage: 0.5 mg, 2x/day
     Route: 048
     Dates: start: 20120727, end: 20120730
  7. CHAMPIX [Suspect]
     Dosage: 1 mg, 2x/day
     Route: 048
     Dates: start: 20120731, end: 20121009
  8. TRAMCET [Suspect]
     Indication: LOW BACK PAIN
     Dosage: 1 DF, 4x/day
     Route: 048
     Dates: start: 20120612
  9. TRAMCET [Suspect]
     Indication: PAIN IN FOOT
  10. CELECOX [Concomitant]
     Indication: LOW BACK PAIN
     Dosage: 100 mg, 2x/day
     Route: 048
     Dates: start: 20120214
  11. CELECOX [Concomitant]
     Indication: PAIN IN FOOT
  12. MUCOSTA [Concomitant]
     Indication: GASTRIC MUCOSAL LESION
     Dosage: 100 mg, 2x/day
     Route: 048
     Dates: start: 20120214
  13. FOSAMAC [Concomitant]
     Indication: OSTEOPOROSIS
     Dosage: 35 mg, 1x/day
     Route: 048
     Dates: start: 20120217

REACTIONS (4)
  - Completed suicide [Fatal]
  - Intentional overdose [Fatal]
  - Irritability [Unknown]
  - Pain [Unknown]
